FAERS Safety Report 11154600 (Version 1)
Quarter: 2015Q2

REPORT INFORMATION
  Report Type: Spontaneous
  Country: US (occurrence: None)
  Receive Date: 20150529
  Receipt Date: 20150529
  Transmission Date: 20150821
  Serious: Yes (Death, Life-Threatening, Other)
  Sender: FDA-Public Use
  Company Number: US-ZYDUS-008202

PATIENT
  Age: 6 Year
  Sex: Male

DRUGS (2)
  1. TACROLIMUS. [Suspect]
     Active Substance: TACROLIMUS
  2. AZATHIOPRINE. [Suspect]
     Active Substance: AZATHIOPRINE

REACTIONS (9)
  - Leukopenia [None]
  - Duodenal ulcer [None]
  - Mass [None]
  - Hypoalbuminaemia [None]
  - Haematochezia [None]
  - Anaemia [None]
  - Epstein-Barr virus test positive [None]
  - Post transplant lymphoproliferative disorder [None]
  - Face oedema [None]
